FAERS Safety Report 4391254-9 (Version None)
Quarter: 2004Q2

REPORT INFORMATION
  Report Type: 
  Country: None (occurrence: None)
  Receive Date: 20040621
  Receipt Date: 20040220
  Transmission Date: 20050107
  Serious: Yes (Other)
  Sender: FDA-Public Use
  Company Number: USA-2003-0003883

PATIENT
  Age: 31 Year
  Sex: Female

DRUGS (16)
  1. OXYCONTIN [Suspect]
     Indication: PAIN
     Dosage: ORAL
     Route: 048
     Dates: start: 19990101, end: 20010601
  2. ROXICODONE [Concomitant]
  3. RELAFEN [Concomitant]
  4. NORTRIPTYLINE HCL [Concomitant]
  5. VALIUM [Concomitant]
  6. ADIPEX-P [Concomitant]
  7. AMOXICILLIN [Concomitant]
  8. POTASSIUM CHLORIDE [Concomitant]
  9. FUROSEMIDE [Concomitant]
  10. ROXICET [Concomitant]
  11. ARTHROTEC [Concomitant]
  12. HYDROCHLOROTHIAZIDE [Concomitant]
  13. TEGRETOL-XR [Concomitant]
  14. CORTANE B OTIC [Concomitant]
  15. VICODIN [Concomitant]
  16. HYDROCODONE [Concomitant]

REACTIONS (17)
  - CERVIX CARCINOMA [None]
  - CONDITION AGGRAVATED [None]
  - CONTUSION [None]
  - DEPRESSION [None]
  - DIARRHOEA [None]
  - DRUG DEPENDENCE [None]
  - DRUG WITHDRAWAL SYNDROME [None]
  - HEADACHE [None]
  - HEPATITIS C [None]
  - HYPERHIDROSIS [None]
  - INSOMNIA [None]
  - IRRITABILITY [None]
  - NAUSEA [None]
  - NERVOUSNESS [None]
  - ROAD TRAFFIC ACCIDENT [None]
  - TREMOR [None]
  - VOMITING [None]
